FAERS Safety Report 4442935-X (Version None)
Quarter: 2004Q3

REPORT INFORMATION
  Report Type: 
  Country: None (occurrence: None)
  Receive Date: 20040728
  Receipt Date: 20040514
  Transmission Date: 20050211
  Serious: No
  Sender: FDA-Public Use
  Company Number: USA040567636

PATIENT
  Age: 53 Year
  Sex: Male

DRUGS (1)
  1. STRATTERA [Suspect]
     Indication: ATTENTION DEFICIT/HYPERACTIVITY DISORDER
     Dosage: 80 MG DAY
     Dates: start: 20040510

REACTIONS (6)
  - ANORGASMIA [None]
  - FEELING ABNORMAL [None]
  - HEAD DISCOMFORT [None]
  - HEADACHE [None]
  - NAUSEA [None]
  - SEDATION [None]
